FAERS Safety Report 7324584-9 (Version None)
Quarter: 2011Q1

REPORT INFORMATION
  Report Type: 
  Country: None (occurrence: None)
  Receive Date: 20110301
  Receipt Date: 20110223
  Transmission Date: 20110831
  Serious: Yes (Other)
  Sender: FDA-Public Use
  Company Number: US-PFIZER INC-2011013497

PATIENT
  Sex: Male
  Weight: 87 kg

DRUGS (5)
  1. GABAPENTIN [Concomitant]
     Indication: PAIN
     Dosage: 300 MG, 3X/DAY
     Route: 048
  2. TIMOPTIC [Suspect]
     Indication: GLAUCOMA
     Dosage: 1 GTT, 1X/DAY, IN EACH EYE IN MORNING
     Route: 047
  3. OMEPRAZOLE [Concomitant]
     Indication: GASTROOESOPHAGEAL REFLUX DISEASE
     Dosage: 20 MG, 1X/DAY
     Route: 048
  4. TIMOPTIC [Suspect]
     Dosage: 1 GTT, 2X/DAY. IN EACH EYE
     Route: 047
  5. XALATAN [Suspect]
     Indication: GLAUCOMA
     Dosage: 1 GTT, 1X/DAY, IN EACH EYE, AT BEDTIME
     Route: 047

REACTIONS (1)
  - VISUAL ACUITY REDUCED [None]
